FAERS Safety Report 7449840-5 (Version None)
Quarter: 2011Q2

REPORT INFORMATION
  Report Type: 
  Country: None (occurrence: None)
  Receive Date: 20110502
  Receipt Date: 20101210
  Transmission Date: 20111010
  Serious: Yes (Other)
  Sender: FDA-Public Use
  Company Number: US-BAYER-201039989NA

PATIENT
  Age: 17 Year
  Sex: Female
  Weight: 49.887 kg

DRUGS (5)
  1. NSAID'S [Concomitant]
  2. YAZ [Suspect]
     Indication: DYSMENORRHOEA
     Route: 048
     Dates: start: 20080801, end: 20090401
  3. YAZ [Suspect]
     Indication: PREMENSTRUAL SYNDROME
  4. VITAMIN C [Concomitant]
  5. YAZ [Suspect]

REACTIONS (5)
  - GALLBLADDER DISORDER [None]
  - ABDOMINAL PAIN [None]
  - BILIARY DYSKINESIA [None]
  - DYSPEPSIA [None]
  - GALLBLADDER CHOLESTEROLOSIS [None]
